FAERS Safety Report 12318622 (Version 3)
Quarter: 2016Q2

REPORT INFORMATION
  Report Type: Spontaneous
  Country: IE (occurrence: IE)
  Receive Date: 20160429
  Receipt Date: 20160524
  Transmission Date: 20160815
  Serious: Yes (Hospitalization, Other)
  Sender: FDA-Public Use
  Company Number: IE-BAYER-2016-075966

PATIENT
  Age: 38 Year
  Sex: Female

DRUGS (1)
  1. MIRENA [Suspect]
     Active Substance: LEVONORGESTREL
     Indication: MENORRHAGIA
     Dosage: 20 MCG/24HR, CONT
     Route: 015
     Dates: start: 20140404

REACTIONS (8)
  - Ectopic pregnancy with contraceptive device [Recovered/Resolved]
  - Drug ineffective [None]
  - Ruptured ectopic pregnancy [Recovered/Resolved]
  - General physical health deterioration [Recovered/Resolved]
  - Post procedural haemorrhage [Recovered/Resolved]
  - Anxiety disorder due to a general medical condition [Recovered/Resolved]
  - Internal haemorrhage [Recovered/Resolved]
  - Volume blood decreased [None]

NARRATIVE: CASE EVENT DATE: 201404
